FAERS Safety Report 25553041 (Version 1)
Quarter: 2025Q3

REPORT INFORMATION
  Report Type: Report from Study
  Country: US (occurrence: US)
  Receive Date: 20250715
  Receipt Date: 20250715
  Transmission Date: 20251021
  Serious: Yes (Hospitalization, Other)
  Sender: UCB
  Company Number: US-UCBSA-2025027225

PATIENT
  Age: 15 Year
  Sex: Male

DRUGS (3)
  1. FINTEPLA [Interacting]
     Active Substance: FENFLURAMINE
     Indication: Severe myoclonic epilepsy of infancy
     Dosage: 3.8 MILLILITER, 2X/DAY (BID)
     Dates: start: 20220329
  2. FINTEPLA [Interacting]
     Active Substance: FENFLURAMINE
  3. FINTEPLA [Interacting]
     Active Substance: FENFLURAMINE
     Dosage: 4 MILLILITER, 2X/DAY (BID)

REACTIONS (3)
  - Seizure [Not Recovered/Not Resolved]
  - Drug interaction [Not Recovered/Not Resolved]
  - Incorrect dose administered [Unknown]

NARRATIVE: CASE EVENT DATE: 20250701
